FAERS Safety Report 18904155 (Version 1)
Quarter: 2021Q1

REPORT INFORMATION
  Report Type: Spontaneous
  Country: US (occurrence: US)
  Receive Date: 20210217
  Receipt Date: 20210217
  Transmission Date: 20210420
  Serious: Yes (Hospitalization, Other)
  Sender: FDA-Public Use
  Company Number: US-GLAXOSMITHKLINE-US2021036375

PATIENT
  Sex: Female

DRUGS (1)
  1. DYAZIDE [Suspect]
     Active Substance: HYDROCHLOROTHIAZIDE\TRIAMTERENE
     Indication: PRODUCT USED FOR UNKNOWN INDICATION
     Dosage: UNK

REACTIONS (7)
  - Coronary artery bypass [Unknown]
  - Endarterectomy [Unknown]
  - Thrombosis [Unknown]
  - Cerebrovascular accident [Unknown]
  - Memory impairment [Unknown]
  - Nonspecific reaction [Unknown]
  - Vertigo [Unknown]

NARRATIVE: CASE EVENT DATE: 2009
